FAERS Safety Report 16049246 (Version 1)
Quarter: 2019Q1

REPORT INFORMATION
  Report Type: Report from Study
  Country: US (occurrence: US)
  Receive Date: 20190307
  Receipt Date: 20190307
  Transmission Date: 20190418
  Serious: Yes (Other)
  Sender: FDA-Public Use
  Company Number: US-MYLANLABS-2019M1012438

PATIENT

DRUGS (2)
  1. GLATIRAMER ACETATE INJECTION [Suspect]
     Active Substance: GLATIRAMER ACETATE
     Dosage: 40 MILLIGRAM, 3XW
     Route: 058
     Dates: start: 20190221
  2. GLATIRAMER ACETATE INJECTION [Suspect]
     Active Substance: GLATIRAMER ACETATE
     Indication: RELAPSING-REMITTING MULTIPLE SCLEROSIS
     Dosage: 40 MILLIGRAM, 3XW
     Route: 058

REACTIONS (11)
  - Fall [Unknown]
  - Injection site mass [Unknown]
  - Asthenia [Recovering/Resolving]
  - Loss of consciousness [Unknown]
  - Dizziness [Recovering/Resolving]
  - Tinnitus [Recovered/Resolved]
  - Injection site haemorrhage [Unknown]
  - Nausea [Unknown]
  - Injection site urticaria [Unknown]
  - Injection site pain [Unknown]
  - Syncope [Unknown]

NARRATIVE: CASE EVENT DATE: 201902
